FAERS Safety Report 5656564-3 (Version None)
Quarter: 2008Q1

REPORT INFORMATION
  Report Type: 
  Country: None (occurrence: None)
  Receive Date: 20080310
  Receipt Date: 20080228
  Transmission Date: 20080703
  Serious: Yes (Other)
  Sender: FDA-Public Use
  Company Number: HQWYE579929MAR06

PATIENT
  Sex: Female

DRUGS (1)
  1. PREMARIN [Suspect]

REACTIONS (5)
  - BREAST CANCER METASTATIC [None]
  - COLONIC POLYP [None]
  - HAEMORRHOIDS [None]
  - METASTASES TO LYMPH NODES [None]
  - RECTAL HAEMORRHAGE [None]
